FAERS Safety Report 9830821 (Version 4)
Quarter: 2014Q1

REPORT INFORMATION
  Report Type: Spontaneous
  Country: GB (occurrence: GB)
  Receive Date: 20140120
  Receipt Date: 20140226
  Transmission Date: 20141002
  Serious: Yes (Life-Threatening, Other)
  Sender: FDA-Public Use
  Company Number: GB-ABBVIE-13P-167-1162709-00

PATIENT
  Age: 68 Year
  Sex: Male

DRUGS (3)
  1. PROSTAP 3 [Suspect]
     Indication: PROSTATE CANCER
     Route: 030
     Dates: start: 20130521, end: 20130827
  2. SIMVASTATIN [Concomitant]
     Indication: PRODUCT USED FOR UNKNOWN INDICATION
  3. PARACETAMOL [Concomitant]
     Indication: PRODUCT USED FOR UNKNOWN INDICATION

REACTIONS (9)
  - Skin lesion [Recovering/Resolving]
  - Injection site swelling [Not Recovered/Not Resolved]
  - Off label use [Not Recovered/Not Resolved]
  - Incorrect route of drug administration [Recovering/Resolving]
  - Wound necrosis [Not Recovered/Not Resolved]
  - Myosclerosis [Not Recovered/Not Resolved]
  - Injection site reaction [Not Recovered/Not Resolved]
  - Injection site erythema [Not Recovered/Not Resolved]
  - Injection site pain [Not Recovered/Not Resolved]
